FAERS Safety Report 17150931 (Version 2)
Quarter: 2019Q4

REPORT INFORMATION
  Report Type: Spontaneous
  Country: US (occurrence: US)
  Receive Date: 20191213
  Receipt Date: 20191226
  Transmission Date: 20200122
  Serious: Yes (Other)
  Sender: FDA-Public Use
  Company Number: US-GLENMARK PHARMACEUTICALS-2019GMK044799

PATIENT

DRUGS (1)
  1. RANOLAZINE EXTENDED-RELEASE TABLETS, 500 MG [Suspect]
     Active Substance: RANOLAZINE
     Indication: ANGINA PECTORIS
     Dosage: 500 MG, UNK
     Route: 065

REACTIONS (1)
  - Angina pectoris [Recovered/Resolved]
